FAERS Safety Report 7201257-4 (Version None)
Quarter: 2010Q4

REPORT INFORMATION
  Report Type: 
  Country: None (occurrence: None)
  Receive Date: 20101227
  Receipt Date: 20101227
  Transmission Date: 20110411
  Serious: Yes (Hospitalization)
  Sender: FDA-Public Use
  Company Number: None

PATIENT
  Age: 17 Year
  Sex: Female
  Weight: 49.8957 kg

DRUGS (2)
  1. PROAIR HFA [Suspect]
     Indication: ASTHMA
     Dosage: METERED AS NEEDED INHAL
     Route: 055
  2. VENTOLIN [Suspect]
     Indication: ASTHMA

REACTIONS (6)
  - ANAPHYLACTIC SHOCK [None]
  - HYPERSENSITIVITY [None]
  - OROPHARYNGEAL PAIN [None]
  - PRODUCT SUBSTITUTION ISSUE [None]
  - RETCHING [None]
  - VOMITING [None]
